FAERS Safety Report 13589125 (Version 1)
Quarter: 2017Q2

REPORT INFORMATION
  Report Type: Spontaneous
  Country: US (occurrence: US)
  Receive Date: 20170526
  Receipt Date: 20170526
  Transmission Date: 20170830
  Serious: Yes (Disabling)
  Sender: FDA-Public Use
  Company Number: None

PATIENT
  Age: 65 Year
  Sex: Male
  Weight: 85.05 kg

DRUGS (3)
  1. REMICADE [Suspect]
     Active Substance: INFLIXIMAB
     Indication: NEUROPATHY PERIPHERAL
     Dates: start: 20150601, end: 20170520
  2. GABAPENTIN. [Concomitant]
     Active Substance: GABAPENTIN
  3. CELEBREX [Concomitant]
     Active Substance: CELECOXIB

REACTIONS (3)
  - Nerve injury [None]
  - Muscular weakness [None]
  - Movement disorder [None]

NARRATIVE: CASE EVENT DATE: 20170510
